FAERS Safety Report 18764890 (Version 2)
Quarter: 2021Q3

REPORT INFORMATION
  Report Type: Spontaneous
  Country: US (occurrence: US)
  Receive Date: 20210121
  Receipt Date: 20210708
  Transmission Date: 20211014
  Serious: Yes (Other)
  Sender: FDA-Public Use
  Company Number: US-AUROBINDO-AUR-APL-2021-002196

PATIENT
  Age: 54 Year
  Sex: Female

DRUGS (4)
  1. RITUXIMAB. [Suspect]
     Active Substance: RITUXIMAB
     Indication: WALDENSTROM^S MACROGLOBULINAEMIA
  2. PREDNISONE. [Suspect]
     Active Substance: PREDNISONE
     Indication: RHEUMATOID ARTHRITIS
     Dosage: UNK
     Route: 065
     Dates: start: 201003
  3. RITUXIMAB. [Suspect]
     Active Substance: RITUXIMAB
     Indication: LYMPHOPLASMACYTOID LYMPHOMA/IMMUNOCYTOMA
     Dosage: UNK
     Route: 065
  4. METHOTREXATE. [Suspect]
     Active Substance: METHOTREXATE
     Indication: RHEUMATOID ARTHRITIS
     Dosage: UNK
     Route: 065

REACTIONS (3)
  - Pneumonia [Recovered/Resolved]
  - Haemophilus infection [Recovered/Resolved]
  - Conjunctivitis [Recovered/Resolved]
